FAERS Safety Report 16162595 (Version 1)
Quarter: 2019Q2

REPORT INFORMATION
  Report Type: Spontaneous
  Country: US (occurrence: US)
  Receive Date: 20190405
  Receipt Date: 20190405
  Transmission Date: 20190711
  Serious: No
  Sender: FDA-Public Use
  Company Number: US-HETERO CORPORATE-HET2019US00352

PATIENT
  Age: 61 Year
  Sex: Male
  Weight: 87.08 kg

DRUGS (1)
  1. LOSARTAN. [Suspect]
     Active Substance: LOSARTAN
     Indication: HYPERTENSION
     Dosage: 100 MG, QD
     Route: 065
     Dates: start: 201902

REACTIONS (4)
  - Headache [Unknown]
  - Chest pain [Unknown]
  - Palpitations [Unknown]
  - Head discomfort [Unknown]

NARRATIVE: CASE EVENT DATE: 201902
